FAERS Safety Report 20546701 (Version 1)
Quarter: 2022Q1

REPORT INFORMATION
  Report Type: Spontaneous
  Country: US (occurrence: None)
  Receive Date: 20220302
  Receipt Date: 20220302
  Transmission Date: 20220423
  Serious: Yes (Hospitalization)
  Sender: FDA-Public Use
  Company Number: None

PATIENT
  Age: 54 Year
  Sex: Female

DRUGS (1)
  1. HUMIRA [Suspect]
     Active Substance: ADALIMUMAB
     Indication: Colitis ulcerative
     Dosage: RX2: INJECT 1 PEN UNDER THE SKIN (SUBCUTANEOUS INJECTION) EVERY OTHER WEEK STARTING ON DAY 29 ?
     Route: 058
     Dates: start: 20211230

REACTIONS (4)
  - Therapy interrupted [None]
  - Malaise [None]
  - Nasopharyngitis [None]
  - Fatigue [None]

NARRATIVE: CASE EVENT DATE: 20210927
